FAERS Safety Report 8246907-9 (Version None)
Quarter: 2012Q1

REPORT INFORMATION
  Report Type: 
  Country: None (occurrence: None)
  Receive Date: 20120330
  Receipt Date: 20120328
  Transmission Date: 20120608
  Serious: Yes (Death)
  Sender: FDA-Public Use
  Company Number: JP-PFIZER INC-2012078865

PATIENT
  Age: 25 Year
  Sex: Female

DRUGS (7)
  1. TRIAZOLAM [Suspect]
     Dosage: UNK
  2. PAROXETINE HCL [Suspect]
     Dosage: UNK
  3. AMOBARBITAL [Suspect]
     Dosage: UNK
  4. PHENOBARBITAL TAB [Suspect]
     Dosage: UNK
  5. CHLORPROMAZINE [Suspect]
     Dosage: UNK
  6. LEVOMEPROMAZINE [Suspect]
     Dosage: UNK
  7. PROMETHAZINE [Suspect]
     Dosage: UNK

REACTIONS (2)
  - INTENTIONAL OVERDOSE [None]
  - TOXICITY TO VARIOUS AGENTS [None]
